FAERS Safety Report 6660590-5 (Version None)
Quarter: 2010Q1

REPORT INFORMATION
  Report Type: 
  Country: None (occurrence: None)
  Receive Date: 20100331
  Receipt Date: 20090325
  Transmission Date: 20100710
  Serious: No
  Sender: FDA-Public Use
  Company Number: US-ABBOTT-09P-163-0564725-00

PATIENT
  Sex: Female
  Weight: 62.198 kg

DRUGS (5)
  1. DEPAKENE [Suspect]
     Indication: EPILEPSY
     Dosage: CLINICAL TRIALS
     Dates: start: 19780101
  2. DEPAKOTE ER [Suspect]
     Indication: EPILEPSY
     Dosage: 3 TABS AM 3 TABS QHS (2 IN 1 DAY)
     Route: 048
     Dates: end: 20090201
  3. DEPAKOTE ER [Suspect]
     Dosage: GENERIC DIVALPROEX SODIUM (2 IN 1 DAY)
     Route: 048
     Dates: start: 20090201
  4. DIVALPROEX SODIUM [Suspect]
     Indication: EPILEPSY
  5. ALBUTEROL SULATE [Concomitant]
     Indication: ASTHMA
     Route: 055

REACTIONS (5)
  - ALOPECIA [None]
  - BRONCHITIS [None]
  - DYSPEPSIA [None]
  - TREMOR [None]
  - WEIGHT INCREASED [None]
